FAERS Safety Report 11148438 (Version 2)
Quarter: 2015Q2

REPORT INFORMATION
  Report Type: Spontaneous
  Country: US (occurrence: None)
  Receive Date: 20150527
  Receipt Date: 20150608
  Transmission Date: 20150821
  Serious: Yes (Hospitalization, Other)
  Sender: FDA-Public Use
  Company Number: 2015COV00102

PATIENT
  Age: 16 Year
  Sex: Female
  Weight: 49.9 kg

DRUGS (1)
  1. HYDROXYCHLOROQUINE (HYDROXYCHLOROQUINE) [Suspect]
     Active Substance: HYDROXYCHLOROQUINE
     Indication: SYSTEMIC LUPUS ERYTHEMATOSUS
     Route: 048
     Dates: start: 2014, end: 20150505

REACTIONS (8)
  - Hallucination [None]
  - Central nervous system lupus [None]
  - Hallucination, visual [None]
  - Psychotic disorder [None]
  - Vision blurred [None]
  - Dysstasia [None]
  - Speech disorder [None]
  - Weight decreased [None]

NARRATIVE: CASE EVENT DATE: 201502
